FAERS Safety Report 5393248-3 (Version None)
Quarter: 2007Q3

REPORT INFORMATION
  Report Type: 
  Country: None (occurrence: None)
  Receive Date: 20070718
  Receipt Date: 20060612
  Transmission Date: 20080115
  Serious: Yes (Hospitalization)
  Sender: FDA-Public Use
  Company Number: 2006074855

PATIENT
  Age: 51 Year
  Sex: Male
  Weight: 97.5234 kg

DRUGS (5)
  1. CELEBREX [Suspect]
     Indication: ARTHRITIS
     Dosage: 200 MG (200 MG, 1 IN 1 D)
     Dates: start: 20020901
  2. ADVIL LIQUI-GELS [Concomitant]
  3. ACETYLSALICYLIC ACID SRT [Concomitant]
  4. ACETAMINOPHEN [Concomitant]
  5. ULTRAM [Concomitant]

REACTIONS (1)
  - MYOCARDIAL INFARCTION [None]
